FAERS Safety Report 23171000 (Version 1)
Quarter: 2023Q4

REPORT INFORMATION
  Report Type: Spontaneous
  Country: US (occurrence: None)
  Receive Date: 20231109
  Receipt Date: 20231109
  Transmission Date: 20240109
  Serious: Yes (Disabling, Other)
  Sender: FDA-Public Use
  Company Number: None

PATIENT
  Age: 27 Year
  Sex: Male
  Weight: 56.7 kg

DRUGS (3)
  1. NEXPLANON [Suspect]
     Active Substance: ETONOGESTREL
     Indication: Contraception
     Dosage: 1 IMPLANT IMPLANTED IN LEFT ARM ?
     Route: 050
     Dates: start: 20230725, end: 20230907
  2. Gabapentin 800mg 2x daily [Concomitant]
  3. One a day woman^s multivitamin calcium pill 600mg [Concomitant]

REACTIONS (10)
  - Pollakiuria [None]
  - Bladder pain [None]
  - Back pain [None]
  - Nausea [None]
  - Diarrhoea [None]
  - Dizziness [None]
  - Palpitations [None]
  - Vulvovaginal pain [None]
  - Genito-pelvic pain/penetration disorder [None]
  - Genital pain [None]

NARRATIVE: CASE EVENT DATE: 20230730
